FAERS Safety Report 6019701-7 (Version None)
Quarter: 2008Q4

REPORT INFORMATION
  Report Type: 
  Country: None (occurrence: None)
  Receive Date: 20081224
  Receipt Date: 20081217
  Transmission Date: 20090506
  Serious: Yes (Hospitalization)
  Sender: FDA-Public Use
  Company Number: DE-WATSON-2008-07390

PATIENT
  Age: 39 Year
  Sex: Female

DRUGS (1)
  1. FERRLECIT [Suspect]
     Indication: IRON DEFICIENCY
     Dosage: 1 AMPOULE, Q 4 WEEKS
     Route: 042
     Dates: start: 20040401

REACTIONS (4)
  - ARTHRITIS [None]
  - HYPOTENSION [None]
  - JOINT EFFUSION [None]
  - OEDEMA PERIPHERAL [None]
